FAERS Safety Report 6282650-3 (Version None)
Quarter: 2009Q3

REPORT INFORMATION
  Report Type: 
  Country: None (occurrence: None)
  Receive Date: 20090720
  Receipt Date: 20090720
  Transmission Date: 20100115
  Serious: Yes (Hospitalization)
  Sender: FDA-Public Use
  Company Number: None

PATIENT
  Age: 69 Year
  Sex: Male
  Weight: 72.1 kg

DRUGS (4)
  1. CAPECITABINE [Suspect]
     Indication: PROSTATE CANCER
     Dosage: 23800 MG/M**2/DAY PO
     Route: 048
     Dates: start: 20090417, end: 20090702
  2. ENOXAPARIN SODIUM [Concomitant]
  3. LORAX [Concomitant]
  4. ESCITALOPRAM [Concomitant]

REACTIONS (3)
  - ASTHENIA [None]
  - CEREBRAL ISCHAEMIA [None]
  - SOMNOLENCE [None]
